FAERS Safety Report 5243159-9 (Version None)
Quarter: 2007Q1

REPORT INFORMATION
  Report Type: 
  Country: None (occurrence: None)
  Receive Date: 20070215
  Receipt Date: 20070201
  Transmission Date: 20070707
  Serious: Yes (Other)
  Sender: FDA-Public Use
  Company Number: B0301245A

PATIENT
  Age: 5 Year
  Sex: Male

DRUGS (2)
  1. FLOVENT [Suspect]
     Indication: ASTHMA
     Dosage: 25 UG TWICE PER DAY
     Dates: start: 20030101
  2. VENTOLIN [Suspect]
     Indication: ASTHMA
     Dosage: 200 UG FOUR TIMES PER DAY
     Dates: start: 20030101

REACTIONS (3)
  - ABNORMAL BEHAVIOUR [None]
  - AGGRESSION [None]
  - AGITATION [None]
